FAERS Safety Report 25785632 (Version 1)
Quarter: 2025Q3

REPORT INFORMATION
  Report Type: Report from Study
  Country: CA (occurrence: CA)
  Receive Date: 20250910
  Receipt Date: 20250910
  Transmission Date: 20251021
  Serious: Yes (Other)
  Sender: TOLMAR
  Company Number: CA-20250830-8a7773, TLM-2025-06509(0)

PATIENT
  Age: 76 Year
  Sex: Male

DRUGS (3)
  1. ELIGARD [Suspect]
     Active Substance: LEUPROLIDE ACETATE
     Indication: Prostate cancer
     Dosage: 45 MG, EVERY 6 MONTHS
     Route: 058
     Dates: start: 20210708
  2. ELIGARD [Suspect]
     Active Substance: LEUPROLIDE ACETATE
     Dosage: 45 MG, EVERY 6 MONTHS
     Route: 058
     Dates: start: 20250830
  3. ELIGARD [Suspect]
     Active Substance: LEUPROLIDE ACETATE
     Indication: Prostate cancer

REACTIONS (2)
  - Fall [Unknown]
  - Femur fracture [Unknown]

NARRATIVE: CASE EVENT DATE: 20250501
